FAERS Safety Report 6685419-0 (Version None)
Quarter: 2010Q2

REPORT INFORMATION
  Report Type: 
  Country: None (occurrence: None)
  Receive Date: 20100418
  Receipt Date: 20100409
  Transmission Date: 20101027
  Serious: Yes (Hospitalization)
  Sender: FDA-Public Use
  Company Number: AR-BRISTOL-MYERS SQUIBB COMPANY-15017767

PATIENT
  Age: 61 Year
  Sex: Male
  Weight: 95 kg

DRUGS (4)
  1. CETUXIMAB [Suspect]
     Indication: NON-SMALL CELL LUNG CANCER
     Dosage: RECENT INF:04MAR10.;TEMP DISC-8MAR2010;RESTART ON 18MAR2010; LAST DOSE-250MG/M2
     Route: 042
     Dates: start: 20100211
  2. PACLITAXEL [Suspect]
     Indication: NON-SMALL CELL LUNG CANCER
     Dosage: ON DAY 1 OF 21 DAY CYCLE, RECENT INF:04MAR10;TEMP DISC-8MAR2010
     Route: 042
     Dates: start: 20100211
  3. CARBOPLATIN [Suspect]
     Indication: NON-SMALL CELL LUNG CANCER
     Dosage: 1 DF= AUC 6, ON DAY 1 OF 21 DAY CYCLE,RECENT INF:04MAR10;TEMP DISC-8MAR2010
     Route: 042
     Dates: start: 20100211
  4. MORPHINE HCL ELIXIR [Suspect]
     Indication: PAIN
     Dosage: FORMULATION:60MG.
     Dates: start: 20100226

REACTIONS (1)
  - ABDOMINAL DISTENSION [None]
